FAERS Safety Report 7568356-9 (Version None)
Quarter: 2011Q2

REPORT INFORMATION
  Report Type: 
  Country: None (occurrence: None)
  Receive Date: 20110623
  Receipt Date: 20110613
  Transmission Date: 20111010
  Serious: Yes (Hospitalization)
  Sender: FDA-Public Use
  Company Number: A0932283A

PATIENT
  Sex: Female
  Weight: 72 kg

DRUGS (2)
  1. CEFUROXIME [Suspect]
     Dosage: 500MG TWICE PER DAY
     Route: 065
     Dates: start: 20110609, end: 20110609
  2. PHENAZOPYRIDINE HCL TAB [Concomitant]
     Dosage: 1TAB IN THE MORNING
     Dates: start: 20110606, end: 20110609

REACTIONS (5)
  - TREMOR [None]
  - JAUNDICE [None]
  - HEADACHE [None]
  - VOMITING [None]
  - EXOPHTHALMOS [None]
